FAERS Safety Report 7812355-6 (Version None)
Quarter: 2011Q4

REPORT INFORMATION
  Report Type: 
  Country: None (occurrence: None)
  Receive Date: 20111013
  Receipt Date: 20111006
  Transmission Date: 20120403
  Serious: Yes (Death, Life-Threatening)
  Sender: FDA-Public Use
  Company Number: GB-GLAXOSMITHKLINE-B0719893A

PATIENT
  Sex: Male
  Weight: 82 kg

DRUGS (20)
  1. PREDNISOLONE [Concomitant]
     Indication: MULTIPLE MYELOMA
     Dates: start: 20090916, end: 20091111
  2. HYDROXOCOBALAMIN [Concomitant]
     Indication: VITAMIN B12 DEFICIENCY
     Route: 058
     Dates: start: 20080819
  3. ADCAL [Concomitant]
     Indication: PROPHYLAXIS
     Route: 048
     Dates: start: 20081203
  4. MOVIPREP [Concomitant]
     Indication: CONSTIPATION
     Route: 048
     Dates: start: 20090408
  5. THALIDOMIDE [Suspect]
     Indication: MULTIPLE MYELOMA
     Dosage: 100MG PER DAY
     Route: 048
     Dates: start: 20090204, end: 20090916
  6. PREDNISONE [Suspect]
     Indication: MULTIPLE MYELOMA
     Dosage: 175MG PER DAY
     Dates: start: 20090204, end: 20090916
  7. VELCADE [Concomitant]
     Indication: MULTIPLE MYELOMA
     Dates: start: 20100908, end: 20101124
  8. DEXAMETHASONE [Concomitant]
     Indication: MULTIPLE MYELOMA
  9. SENNA [Concomitant]
     Indication: CONSTIPATION
     Route: 048
     Dates: start: 20090303
  10. ACETAMINOPHEN AND CODEINE PHOSPHATE [Concomitant]
     Indication: PAIN
     Route: 048
  11. MAGNESIUM HYDROXIDE [Concomitant]
     Indication: CONSTIPATION
     Dosage: 20ML TWICE PER DAY
     Route: 048
     Dates: start: 20090408
  12. ZOLEDRONIC [Concomitant]
     Indication: OSTEOLYSIS
     Dosage: .1333MG MONTHLY
     Route: 042
     Dates: start: 20080312
  13. ENOXAPARIN SODIUM [Concomitant]
     Indication: THROMBOSIS PROPHYLAXIS
     Route: 058
     Dates: start: 20090204
  14. DOMPERIDONE [Concomitant]
     Indication: PROPHYLAXIS
     Route: 048
     Dates: start: 20090204
  15. PENTAMIDINE [Concomitant]
     Indication: PROPHYLAXIS
     Dosage: 10MG MONTHLY
     Route: 055
     Dates: start: 20090318
  16. ALBUTEROL [Concomitant]
     Indication: PROPHYLAXIS
     Dosage: .0833MG MONTHLY
     Route: 055
     Dates: start: 20090318
  17. MELPHALAN HYDROCHLORIDE [Suspect]
     Indication: MULTIPLE MYELOMA
     Dosage: 18MG PER DAY
     Route: 065
     Dates: start: 20090204, end: 20090916
  18. OMEPRAZOLE [Concomitant]
     Indication: GASTRITIS PROPHYLAXIS
     Dosage: 40MG TWICE PER DAY
     Route: 048
     Dates: start: 20090204
  19. NEUPOGEN [Concomitant]
     Indication: NEUTROPENIA
     Dosage: 75.1529UG TWO TIMES PER WEEK
     Route: 048
     Dates: start: 20090930
  20. IBUGEL [Concomitant]
     Indication: ARTHRITIS
     Route: 061
     Dates: start: 20090804

REACTIONS (2)
  - NEUTROPENIC SEPSIS [None]
  - ACUTE MYELOID LEUKAEMIA [None]
